FAERS Safety Report 6140047-0 (Version None)
Quarter: 2009Q2

REPORT INFORMATION
  Report Type: 
  Country: None (occurrence: None)
  Receive Date: 20090401
  Receipt Date: 20090319
  Transmission Date: 20091009
  Serious: Yes (Other)
  Sender: FDA-Public Use
  Company Number: PHHY2009SI10472

PATIENT
  Sex: Male

DRUGS (3)
  1. EMSELEX EXTENDED RELEASE [Suspect]
     Indication: HYPERTONIC BLADDER
     Dosage: 7.5 MG
  2. IMMUNOMODULATOR [Concomitant]
  3. VITAMIN B COMPLEX CAP [Concomitant]

REACTIONS (1)
  - ERECTILE DYSFUNCTION [None]
